FAERS Safety Report 9250296 (Version 1)
Quarter: 2013Q1

REPORT INFORMATION
  Report Type: Spontaneous
  Country: US (occurrence: None)
  Receive Date: 20130305
  Receipt Date: 20130305
  Transmission Date: 20140127
  Serious: Yes (Hospitalization, Other)
  Sender: FDA-Public Use
  Company Number: 163-21880-12052938

PATIENT
  Age: 75 Year
  Sex: Female

DRUGS (3)
  1. REVLIMID [Suspect]
     Indication: PLASMA CELL MYELOMA
     Dosage: 15 MG, DAILY X 21 DAYS, PO
     Route: 048
     Dates: start: 20100616
  2. NORVASC (AMLODIPINE BESILATE) UNKNOWN [Concomitant]
  3. AMLODIPINE BESY BENZAPRIL (ASONEX-D) UNKNOWN [Concomitant]

REACTIONS (4)
  - Chest pain [None]
  - Thrombosis [None]
  - Neuropathy peripheral [None]
  - Diarrhoea [None]
